FAERS Safety Report 4347445-6 (Version None)
Quarter: 2004Q2

REPORT INFORMATION
  Report Type: 
  Country: None (occurrence: None)
  Receive Date: 20040422
  Receipt Date: 20040412
  Transmission Date: 20050107
  Serious: Yes (Other)
  Sender: FDA-Public Use
  Company Number: USA040464009

PATIENT
  Sex: Female
  Weight: 101 kg

DRUGS (4)
  1. XIGRIS [Suspect]
     Indication: SEPSIS
     Dosage: 24 MG/KG/HR OTHER
     Dates: start: 20040402, end: 20040405
  2. HEPARIN SODIUM [Suspect]
     Dosage: 5000 U/3 DAY
     Dates: start: 20040401, end: 20040404
  3. ANTIBIOTIC [Concomitant]
  4. UNSPECIFIED VASOPRESSORS [Concomitant]

REACTIONS (1)
  - DISSEMINATED INTRAVASCULAR COAGULATION [None]
